FAERS Safety Report 7108144-0 (Version None)
Quarter: 2010Q4

REPORT INFORMATION
  Report Type: 
  Country: None (occurrence: None)
  Receive Date: 20101115
  Receipt Date: 20101115
  Transmission Date: 20110411
  Serious: Yes (Life-Threatening, Hospitalization, Other)
  Sender: FDA-Public Use
  Company Number: None

PATIENT
  Sex: Female
  Weight: 70 kg

DRUGS (2)
  1. INFLIXIMAB [Suspect]
     Indication: CROHN'S DISEASE
     Dosage: Q6-8 WK IV
     Route: 042
     Dates: start: 20061101, end: 20070503
  2. IMURAN [Suspect]
     Indication: CROHN'S DISEASE
     Dosage: 150 MG QD PO
     Route: 048
     Dates: start: 20060901, end: 20070503

REACTIONS (1)
  - HODGKIN'S DISEASE STAGE II [None]
